FAERS Safety Report 9982233 (Version 1)
Quarter: 2014Q1

REPORT INFORMATION
  Report Type: Report from Study
  Country: US (occurrence: US)
  Receive Date: 20140307
  Receipt Date: 20140307
  Transmission Date: 20141002
  Serious: No
  Sender: FDA-Public Use
  Company Number: US-ABBVIE-13P-163-1177982-00

PATIENT
  Age: 48 Year
  Sex: Female

DRUGS (3)
  1. HUMIRA [Suspect]
     Indication: CROHN^S DISEASE
     Dosage: LOADING DOSE, DAY ONE
     Dates: start: 20131031, end: 20131031
  2. HUMIRA [Suspect]
     Dosage: DAY FIFTEEN
     Dates: start: 20131114, end: 20131114
  3. HUMIRA [Suspect]
     Dates: start: 20131128

REACTIONS (7)
  - Therapeutic response unexpected [Unknown]
  - Discomfort [Unknown]
  - Dysstasia [Not Recovered/Not Resolved]
  - Discomfort [Not Recovered/Not Resolved]
  - Constipation [Not Recovered/Not Resolved]
  - Faeces hard [Not Recovered/Not Resolved]
  - Pain in extremity [Not Recovered/Not Resolved]
